FAERS Safety Report 7054705-7 (Version None)
Quarter: 2010Q4

REPORT INFORMATION
  Report Type: 
  Country: None (occurrence: None)
  Receive Date: 20101015
  Receipt Date: 20100929
  Transmission Date: 20110411
  Serious: Yes (Death, Other)
  Sender: FDA-Public Use
  Company Number: 011321

PATIENT
  Age: 55 Year
  Sex: Male

DRUGS (3)
  1. BUSULFEX [Suspect]
     Indication: BONE MARROW TRANSPLANT
  2. BUSULFEX [Suspect]
     Indication: STEM CELL TRANSPLANT
  3. CYCLOPHOSPHAMIDE [Concomitant]

REACTIONS (4)
  - ACUTE GRAFT VERSUS HOST DISEASE IN LIVER [None]
  - ACUTE GRAFT VERSUS HOST DISEASE IN SKIN [None]
  - GRAFT VERSUS HOST DISEASE [None]
  - MYELODYSPLASTIC SYNDROME [None]
